FAERS Safety Report 8088355-0 (Version None)
Quarter: 2012Q1

REPORT INFORMATION
  Report Type: 
  Country: None (occurrence: None)
  Receive Date: 20120128
  Receipt Date: 20110531
  Transmission Date: 20120608
  Serious: No
  Sender: FDA-Public Use
  Company Number: US-ABBOTT-11P-163-0729262-00

PATIENT
  Sex: Female
  Weight: 85.352 kg

DRUGS (5)
  1. ASACOL [Concomitant]
     Indication: CROHN'S DISEASE
  2. ZOLOFT [Concomitant]
     Indication: DEPRESSION
  3. AMLODIPINE [Concomitant]
     Indication: HYPERTENSION
  4. HUMIRA [Suspect]
     Indication: CROHN'S DISEASE
     Dates: start: 20100705, end: 20101101
  5. HUMIRA [Suspect]
     Dates: start: 20110517

REACTIONS (4)
  - INJECTION SITE SWELLING [None]
  - INJECTION SITE HAEMATOMA [None]
  - INJECTION SITE PAIN [None]
  - HEPATIC ENZYME INCREASED [None]
